FAERS Safety Report 7479307-X (Version None)
Quarter: 2011Q2

REPORT INFORMATION
  Report Type: 
  Country: None (occurrence: None)
  Receive Date: 20110513
  Receipt Date: 20110427
  Transmission Date: 20111010
  Serious: Yes (Death, Other)
  Sender: FDA-Public Use
  Company Number: US-BAYER-201010374NA

PATIENT
  Sex: Male

DRUGS (17)
  1. NITROGLYCERIN [Concomitant]
     Dosage: AS NEEDED
     Route: 060
  2. CATAPRES [Concomitant]
     Route: 058
  3. LIPITOR [Concomitant]
     Dosage: 10 MG DAILY
  4. CARDURA [Concomitant]
     Dosage: 1 MG DAILY
  5. VIGAMOX [Concomitant]
     Dosage: UNK
     Dates: start: 20050818, end: 20050822
  6. TRASYLOL [Suspect]
     Indication: PRODUCT USED FOR UNKNOWN INDICATION
     Route: 042
     Dates: start: 20050831
  7. ACETYLSALICYLIC ACID SRT [Concomitant]
     Route: 048
  8. INSULIN [INSULIN] [Concomitant]
     Dosage: UNK
     Dates: start: 20050830, end: 20050909
  9. ATROPINE [Concomitant]
     Dosage: UNK
     Dates: start: 20050818, end: 20050822
  10. HYDRALAZINE HCL [Concomitant]
     Dosage: UNK
     Dates: start: 20050823, end: 20050830
  11. DIOVAN [Concomitant]
     Dosage: 160 MG DAILY
     Route: 048
  12. METOPROLOL SUCCINATE [Concomitant]
     Dosage: UNK
     Dates: start: 20050823, end: 20050908
  13. GABAPENTIN [Concomitant]
     Dosage: UNK
     Dates: start: 20050818, end: 20050822
  14. ECONOPRED [Concomitant]
     Dosage: UNK
     Dates: start: 20050824, end: 20050908
  15. TOBRADEX [Concomitant]
     Dosage: UNK
     Dates: start: 20050818, end: 20050822
  16. COZAAR [Concomitant]
     Dosage: 50MG DAILY
     Route: 048
  17. CRESTOR [Concomitant]
     Dosage: 10 MG DAILY
     Route: 048

REACTIONS (13)
  - EMOTIONAL DISTRESS [None]
  - INJURY [None]
  - UNEVALUABLE EVENT [None]
  - MULTI-ORGAN FAILURE [None]
  - ANHEDONIA [None]
  - RENAL INJURY [None]
  - RENAL FAILURE [None]
  - DEATH [None]
  - RENAL IMPAIRMENT [None]
  - ANXIETY [None]
  - PAIN [None]
  - STRESS [None]
  - FEAR [None]
